FAERS Safety Report 6377875-2 (Version None)
Quarter: 2009Q3

REPORT INFORMATION
  Report Type: 
  Country: None (occurrence: None)
  Receive Date: 20090925
  Receipt Date: 20090914
  Transmission Date: 20100115
  Serious: Yes (Other)
  Sender: FDA-Public Use
  Company Number: PHHY2009ES39454

PATIENT
  Sex: Male

DRUGS (2)
  1. TASIGNA [Suspect]
     Dosage: UNK
     Dates: start: 20090701
  2. DASATINIB [Concomitant]

REACTIONS (1)
  - LUNG INFILTRATION [None]
